FAERS Safety Report 5335921-9 (Version None)
Quarter: 2007Q1

REPORT INFORMATION
  Report Type: 
  Country: None (occurrence: None)
  Receive Date: 20070302
  Receipt Date: 20061218
  Transmission Date: 20070707
  Serious: No
  Sender: FDA-Public Use
  Company Number: PHEH2006US14741

PATIENT
  Sex: Female

DRUGS (2)
  1. EXJADE [Suspect]
     Indication: ANAEMIA
     Dosage: 1000MG, UNK, ORAL
     Route: 048
     Dates: start: 20060801
  2. ARANESP [Concomitant]

REACTIONS (2)
  - BLOOD IRON INCREASED [None]
  - RASH [None]
